FAERS Safety Report 5977705-4 (Version None)
Quarter: 2008Q4

REPORT INFORMATION
  Report Type: 
  Country: None (occurrence: None)
  Receive Date: 20081203
  Receipt Date: 20081124
  Transmission Date: 20090506
  Serious: Yes (Death, Hospitalization)
  Sender: FDA-Public Use
  Company Number: FI-ROCHE-594781

PATIENT
  Sex: Male

DRUGS (2)
  1. XELODA [Suspect]
     Indication: RECTAL CANCER
     Route: 048
     Dates: start: 20081001, end: 20081001
  2. XELODA [Suspect]
     Route: 048
     Dates: start: 20080915, end: 20080922

REACTIONS (6)
  - DIARRHOEA [None]
  - MELAENA [None]
  - ORAL MUCOSAL EXFOLIATION [None]
  - SEPSIS [None]
  - SKIN REACTION [None]
  - THROMBOCYTOPENIA [None]
